FAERS Safety Report 22130792 (Version 1)
Quarter: 2023Q1

REPORT INFORMATION
  Report Type: Report from Study
  Country: DE (occurrence: DE)
  Receive Date: 20230323
  Receipt Date: 20230323
  Transmission Date: 20230418
  Serious: Yes (Other)
  Sender: FDA-Public Use
  Company Number: DE-MYLANLABS-2023M1030607

PATIENT
  Age: 55 Year
  Sex: Female

DRUGS (8)
  1. ZOLEDRONIC ACID [Suspect]
     Active Substance: ZOLEDRONIC ACID
     Indication: Langerhans^ cell histiocytosis
     Dosage: UNK
     Route: 065
  2. ETORICOXIB [Suspect]
     Active Substance: ETORICOXIB
     Indication: Langerhans^ cell histiocytosis
     Dosage: 60 MILLIGRAM, QD
     Route: 048
  3. TROFOSFAMIDE [Suspect]
     Active Substance: TROFOSFAMIDE
     Indication: Langerhans^ cell histiocytosis
     Dosage: 50 MILLIGRAM, TID
     Route: 048
  4. TROFOSFAMIDE [Suspect]
     Active Substance: TROFOSFAMIDE
     Dosage: UNK (REDUCED)
     Route: 065
  5. PIOGLITAZONE [Suspect]
     Active Substance: PIOGLITAZONE
     Indication: Langerhans^ cell histiocytosis
     Dosage: 30 MILLIGRAM, QD
     Route: 048
  6. PIOGLITAZONE [Suspect]
     Active Substance: PIOGLITAZONE
     Dosage: UNK (REDUCED)
     Route: 065
  7. CYTARABINE [Suspect]
     Active Substance: CYTARABINE
     Indication: Langerhans^ cell histiocytosis
     Dosage: UNK
     Route: 065
  8. DEXAMETHASONE [Concomitant]
     Active Substance: DEXAMETHASONE
     Indication: Drug therapy
     Dosage: 0.5 MILLIGRAM, QD
     Route: 048

REACTIONS (2)
  - Treatment failure [Unknown]
  - Off label use [Unknown]
